FAERS Safety Report 20308915 (Version 1)
Quarter: 2022Q1

REPORT INFORMATION
  Report Type: Spontaneous
  Country: US (occurrence: None)
  Receive Date: 20220106
  Receipt Date: 20220106
  Transmission Date: 20220423
  Serious: No
  Sender: FDA-Public Use
  Company Number: None

PATIENT
  Age: 67 Year
  Sex: Female
  Weight: 58.95 kg

DRUGS (12)
  1. GLEOSTINE [Suspect]
     Active Substance: LOMUSTINE
     Indication: Brain neoplasm malignant
     Dosage: OTHER FREQUENCY : EVERY 6 WEEKS;?
     Route: 048
     Dates: start: 20210921
  2. GLEOSTINE [Suspect]
     Active Substance: LOMUSTINE
     Indication: Brain neoplasm malignant
     Dosage: OTHER FREQUENCY : EVERY 6 WEEKS;?
     Route: 048
     Dates: start: 20210921
  3. CARVEDILOL [Concomitant]
     Active Substance: CARVEDILOL
  4. Centrum Adults [Concomitant]
  5. CETIRIZINE [Concomitant]
     Active Substance: CETIRIZINE HYDROCHLORIDE
  6. Chondroitin sulfate 150mg [Concomitant]
  7. CoQ-10 100mg [Concomitant]
  8. ELIQUIS [Concomitant]
     Active Substance: APIXABAN
  9. Glucosamine 1500 Complex [Concomitant]
  10. LEVETIRACETAM [Concomitant]
     Active Substance: LEVETIRACETAM
  11. LOSARTAN [Concomitant]
     Active Substance: LOSARTAN
  12. Stool softener 100mg [Concomitant]

REACTIONS (1)
  - Platelet count decreased [None]

NARRATIVE: CASE EVENT DATE: 20220106
